FAERS Safety Report 9613055 (Version 2)
Quarter: 2013Q4

REPORT INFORMATION
  Report Type: Spontaneous
  Country: US (occurrence: None)
  Receive Date: 20130925
  Receipt Date: 20131007
  Transmission Date: 20140711
  Serious: Yes (Hospitalization)
  Sender: FDA-Public Use
  Company Number: 2013038093

PATIENT
  Age: 64 Year
  Sex: Male
  Weight: 84.82 kg

DRUGS (14)
  1. HIZENTRA [Suspect]
     Indication: IMMUNODEFICIENCY COMMON VARIABLE
     Dosage: 1X/WEEK
     Route: 058
     Dates: start: 20130823, end: 20130823
  2. ASA (ACETYLSALICYLIC ACID) [Concomitant]
  3. ATROVENT (IPRATROPIUM BROMIDE) [Concomitant]
  4. DIGOXIN (DIGOXIN) [Concomitant]
  5. DUONEB (COMBIVENT) [Concomitant]
  6. LASIX (FUROSEMIDE) [Concomitant]
  7. LISINOPRIL (LISINOPRIL) [Concomitant]
  8. LOVASTATIN (LOVASTATIN) [Concomitant]
  9. NITROSTAT (GLYCERYL TRINITRATE) [Concomitant]
  10. OMEPRAZOLE (OMEPRAZOLE) [Concomitant]
  11. SINGULAIR [Concomitant]
  12. SPIRIVA (TIOTROPIUM BROMIDE) [Concomitant]
  13. SYMBICORT (BIDESONIDE W/FORMOTEROL FUMARATE) [Concomitant]
  14. PREDNISONE [Concomitant]

REACTIONS (6)
  - Local swelling [None]
  - Rash [None]
  - Dyspnoea [None]
  - Asthenia [None]
  - Pancreatitis [None]
  - Anaemia [None]
